FAERS Safety Report 21884146 (Version 1)
Quarter: 2023Q1

REPORT INFORMATION
  Report Type: Spontaneous
  Country: US (occurrence: US)
  Receive Date: 20230119
  Receipt Date: 20230119
  Transmission Date: 20230417
  Serious: Yes (Other)
  Sender: FDA-Public Use
  Company Number: US-drreddys-SPO/USA/22/0158720

PATIENT
  Age: 81 Year
  Sex: Female

DRUGS (15)
  1. LENALIDOMIDE [Suspect]
     Active Substance: LENALIDOMIDE
     Indication: Myelodysplastic syndrome
     Dosage: BY MOUTH EVERY NIGHT AT BEDTIME. DO NOT BREAK, CHEW, OR OPEN CAPSULES
     Route: 048
     Dates: start: 20221025
  2. LENALIDOMIDE [Suspect]
     Active Substance: LENALIDOMIDE
     Indication: Cytogenetic abnormality
     Dosage: TAKE 1 CAPSULE BY MOUTH EVERY NIGHT AT BEDTIME. DO NOT BREAK, CHEW, OR OPEN CAPSULES
     Route: 048
     Dates: start: 20220523
  3. ONDANSETRON [Concomitant]
     Active Substance: ONDANSETRON
     Indication: Product used for unknown indication
  4. PRAVASTATIN TAB 40MG [Concomitant]
     Indication: Product used for unknown indication
  5. LINZESS CAP 290MCG [Concomitant]
     Indication: Product used for unknown indication
  6. ZYRTEC ALLER CAP 10MG [Concomitant]
     Indication: Product used for unknown indication
  7. ASPIRIN TBE 325MG [Concomitant]
     Indication: Product used for unknown indication
  8. CALCIUM 500 TAB 500-125M [Concomitant]
     Indication: Product used for unknown indication
     Dosage: 500-125M
  9. DULOXETINE H CPE 60MG [Concomitant]
     Indication: Product used for unknown indication
  10. METHENAMINE TAB 1GM [Concomitant]
     Indication: Product used for unknown indication
  11. NEXIUM CPD 40MG [Concomitant]
     Indication: Product used for unknown indication
  12. OLMESARTAN M TAB 40MG [Concomitant]
     Indication: Product used for unknown indication
  13. PRESERVISION CAP [Concomitant]
     Indication: Product used for unknown indication
  14. VITAMIN B 12 TAB 500MCG [Concomitant]
     Indication: Product used for unknown indication
  15. VITAMIN C TAB 1000MG [Concomitant]
     Indication: Product used for unknown indication

REACTIONS (16)
  - Starvation [Unknown]
  - Cerebrovascular accident [Unknown]
  - Taste disorder [Unknown]
  - Negative thoughts [Unknown]
  - Peripheral swelling [Recovered/Resolved]
  - Hypotension [Recovered/Resolved]
  - Peripheral swelling [Recovered/Resolved]
  - Vomiting [Not Recovered/Not Resolved]
  - Nausea [Not Recovered/Not Resolved]
  - Constipation [Unknown]
  - Pain in extremity [Unknown]
  - Fatigue [Unknown]
  - Somnolence [Unknown]
  - Dyspnoea [Unknown]
  - Depression [Unknown]
  - Diarrhoea [Unknown]
